FAERS Safety Report 9410973 (Version 1)
Quarter: 2013Q3

REPORT INFORMATION
  Report Type: Spontaneous
  Country: US (occurrence: US)
  Receive Date: 20130719
  Receipt Date: 20130719
  Transmission Date: 20140515
  Serious: Yes (Other)
  Sender: FDA-Public Use
  Company Number: US-B.I. PHARMACEUTICALS,INC./RIDGEFIELD-2012-BP-25232BP

PATIENT
  Age: 19 Year
  Sex: Female
  Weight: 98 kg

DRUGS (1)
  1. PRADAXA [Suspect]
     Indication: HYPERCOAGULATION
     Dosage: 300 MG
     Route: 048
     Dates: start: 201202

REACTIONS (2)
  - Abortion [Unknown]
  - Abortion induced [Unknown]
